FAERS Safety Report 20671050 (Version 3)
Quarter: 2022Q2

REPORT INFORMATION
  Report Type: Spontaneous
  Country: US (occurrence: US)
  Receive Date: 20220404
  Receipt Date: 20220604
  Transmission Date: 20220721
  Serious: No
  Sender: FDA-Public Use
  Company Number: US-SA-SAC20220330001190

PATIENT
  Sex: Male

DRUGS (1)
  1. DUPIXENT [Suspect]
     Active Substance: DUPILUMAB
     Indication: Dermatitis allergic
     Dosage: 300 MG, QOW
     Route: 058

REACTIONS (4)
  - Eczema [Unknown]
  - Attention deficit hyperactivity disorder [Not Recovered/Not Resolved]
  - Product use in unapproved indication [Unknown]
  - Product dose omission in error [Unknown]
